FAERS Safety Report 9419261 (Version 1)
Quarter: 2013Q3

REPORT INFORMATION
  Report Type: Spontaneous
  Country: US (occurrence: US)
  Receive Date: 20130725
  Receipt Date: 20130725
  Transmission Date: 20140515
  Serious: No
  Sender: FDA-Public Use
  Company Number: US-GLAXOSMITHKLINE-A0991607A

PATIENT
  Age: 53 Year
  Sex: Male

DRUGS (2)
  1. LAMICTAL [Suspect]
     Indication: ATTENTION DEFICIT/HYPERACTIVITY DISORDER
     Dosage: 300MG PER DAY
     Route: 048
  2. VYVANSE [Suspect]
     Indication: ATTENTION DEFICIT/HYPERACTIVITY DISORDER
     Dosage: 30MG PER DAY
     Route: 048

REACTIONS (3)
  - Insomnia [Unknown]
  - Tremor [Unknown]
  - Wrong technique in drug usage process [Unknown]
